FAERS Safety Report 9041054 (Version 1)
Quarter: 2013Q1

REPORT INFORMATION
  Report Type: Spontaneous
  Country: US (occurrence: None)
  Receive Date: 20130124
  Receipt Date: 20130124
  Transmission Date: 20140127
  Serious: Yes (Life-Threatening, Hospitalization, Disabling)
  Sender: FDA-Public Use
  Company Number: None

PATIENT
  Age: 63 Year
  Sex: Female

DRUGS (1)
  1. DEPAKOTE - VALPORIC ACID [Suspect]
     Indication: DEMENTIA
     Dosage: 1000 MG DAILY  ORAL
     Route: 048
     Dates: start: 20110904, end: 20130117

REACTIONS (13)
  - Dementia [None]
  - Lethargy [None]
  - Weight decreased [None]
  - Hallucination [None]
  - Hypopnoea [None]
  - Constipation [None]
  - Faeces pale [None]
  - Tremor [None]
  - Disease progression [None]
  - Dysstasia [None]
  - Pyrexia [None]
  - Asthenia [None]
  - Lacrimation increased [None]
